FAERS Safety Report 8112558-X (Version None)
Quarter: 2012Q1

REPORT INFORMATION
  Report Type: 
  Country: None (occurrence: None)
  Receive Date: 20120203
  Receipt Date: 20120130
  Transmission Date: 20120608
  Serious: Yes (Other)
  Sender: FDA-Public Use
  Company Number: ES-ROCHE-1018015

PATIENT
  Sex: Female
  Weight: 66 kg

DRUGS (5)
  1. TAXOTERE [Suspect]
     Indication: BREAST CANCER
     Route: 065
     Dates: start: 20111019, end: 20111226
  2. HERCEPTIN [Suspect]
     Indication: BREAST CANCER
     Route: 042
     Dates: start: 20111019, end: 20111226
  3. CARBOPLATIN [Suspect]
     Indication: BREAST CANCER
     Dosage: 6 AUC1
     Route: 042
     Dates: start: 20111109, end: 20111226
  4. PREDNISONE TAB [Concomitant]
     Route: 048
     Dates: start: 20111118, end: 20111227
  5. GRANISETRON [Concomitant]
     Route: 042
     Dates: start: 20111109, end: 20111226

REACTIONS (1)
  - DERMATITIS EXFOLIATIVE [None]
